FAERS Safety Report 17157546 (Version 2)
Quarter: 2019Q4

REPORT INFORMATION
  Report Type: Spontaneous
  Country: US (occurrence: US)
  Receive Date: 20191216
  Receipt Date: 20191218
  Transmission Date: 20200122
  Serious: Yes (Life-Threatening, Hospitalization, Other)
  Sender: FDA-Public Use
  Company Number: US-BAYER-2019-076878

PATIENT
  Age: 77 Year
  Sex: Female

DRUGS (3)
  1. XARELTO [Suspect]
     Active Substance: RIVAROXABAN
     Indication: DEEP VEIN THROMBOSIS
     Dosage: UNK
     Route: 048
     Dates: start: 20170417, end: 20170501
  2. XARELTO [Suspect]
     Active Substance: RIVAROXABAN
     Indication: DEEP VEIN THROMBOSIS
     Dosage: UNK
     Dates: start: 201705, end: 20170517
  3. ACETYLSALICYLIC ACID [Suspect]
     Active Substance: ASPIRIN
     Dosage: UNK
     Route: 065

REACTIONS (6)
  - Ischaemic hepatitis [Recovering/Resolving]
  - Cardiogenic shock [Recovered/Resolved]
  - Melaena [Recovering/Resolving]
  - Pericardial haemorrhage [Recovering/Resolving]
  - Cardiac tamponade [Recovered/Resolved]
  - Renal disorder [None]

NARRATIVE: CASE EVENT DATE: 20170501
